FAERS Safety Report 16343145 (Version 1)
Quarter: 2019Q2

REPORT INFORMATION
  Report Type: Spontaneous
  Country: US (occurrence: US)
  Receive Date: 20190522
  Receipt Date: 20190522
  Transmission Date: 20190711
  Serious: No
  Sender: FDA-Public Use
  Company Number: US-LEADING PHARMA, LLC-2067305

PATIENT
  Sex: Female

DRUGS (1)
  1. LORAZEPAM. [Suspect]
     Active Substance: LORAZEPAM
     Indication: DYSTONIA
     Route: 048
     Dates: start: 20190328

REACTIONS (3)
  - Off label use [None]
  - Nausea [Recovered/Resolved]
  - Abdominal pain upper [Recovered/Resolved]
